FAERS Safety Report 18206846 (Version 1)
Quarter: 2020Q3

REPORT INFORMATION
  Report Type: Spontaneous
  Country: IT (occurrence: IT)
  Receive Date: 20200828
  Receipt Date: 20200828
  Transmission Date: 20201103
  Serious: Yes (Other)
  Sender: FDA-Public Use
  Company Number: IT-ACCORD-197562

PATIENT
  Age: 67 Year
  Sex: Female
  Weight: 49 kg

DRUGS (4)
  1. IMODIUM [Concomitant]
     Active Substance: LOPERAMIDE HYDROCHLORIDE
     Route: 048
  2. NORMIX [Concomitant]
     Active Substance: RIFAXIMIN
     Route: 048
  3. KCL?RETARD [Concomitant]
     Active Substance: POTASSIUM CHLORIDE
     Dosage: 600 MG
     Route: 048
  4. PACLITAXEL ACCORD HEALTHCARE ITALY [Suspect]
     Active Substance: PACLITAXEL
     Indication: OVARIAN NEOPLASM
     Dosage: 6 MG / ML, CONCENTRATE FOR SOLUTION
     Route: 042
     Dates: start: 20200714, end: 20200721

REACTIONS (1)
  - Epilepsy [Recovered/Resolved]

NARRATIVE: CASE EVENT DATE: 20200714
